FAERS Safety Report 4666404-7 (Version None)
Quarter: 2005Q2

REPORT INFORMATION
  Report Type: 
  Country: None (occurrence: None)
  Receive Date: 20050519
  Receipt Date: 20050509
  Transmission Date: 20051028
  Serious: Yes (Hospitalization)
  Sender: FDA-Public Use
  Company Number: 2005UW07227

PATIENT
  Age: 54 Year
  Sex: Female
  Weight: 68 kg

DRUGS (3)
  1. ARIMIDEX [Suspect]
     Indication: BREAST CANCER
     Route: 048
     Dates: start: 20030101, end: 20050101
  2. MICARDIS [Concomitant]
  3. ASPIRIN [Concomitant]

REACTIONS (7)
  - BLOOD ALKALINE PHOSPHATASE INCREASED [None]
  - COUGH [None]
  - HEPATIC PAIN [None]
  - NAUSEA [None]
  - PHARYNGOLARYNGEAL PAIN [None]
  - VERTIGO [None]
  - VOMITING [None]
